FAERS Safety Report 8109287 (Version 4)
Quarter: 2013Q4

REPORT INFORMATION
  Report Type: Spontaneous
  Country: US (occurrence: US)
  Receive Date: 20110826
  Receipt Date: 20131127
  Transmission Date: 20140711
  Serious: Yes (Hospitalization, Other)
  Sender: FDA-Public Use
  Company Number: US-BAYER-2011-075266

PATIENT
  Age: 33 Year
  Sex: Female
  Weight: 71.66 kg

DRUGS (1)
  1. YAZ [Suspect]
     Dosage: UNK
     Dates: start: 2004, end: 2006

REACTIONS (3)
  - Gallbladder injury [None]
  - Cholelithiasis [None]
  - Injury [None]
